FAERS Safety Report 5569576-5 (Version None)
Quarter: 2007Q4

REPORT INFORMATION
  Report Type: 
  Country: None (occurrence: None)
  Receive Date: 20071220
  Receipt Date: 20071207
  Transmission Date: 20080405
  Serious: Yes (Other)
  Sender: FDA-Public Use
  Company Number: GB-RANBAXY-2007RR-11981

PATIENT

DRUGS (2)
  1. SIMVASTATIN 10MG TABLETS [Suspect]
     Indication: HYPERLIPIDAEMIA
     Dosage: 1 DF, QD
     Route: 048
     Dates: start: 20070905, end: 20071101
  2. INFLUENZA VIRUS [Concomitant]
     Dosage: 1 DF, UNK
     Dates: start: 20071029, end: 20071029

REACTIONS (4)
  - ANHEDONIA [None]
  - DEPRESSED MOOD [None]
  - DEPRESSION [None]
  - SLEEP DISORDER [None]
